FAERS Safety Report 16899974 (Version 1)
Quarter: 2019Q4

REPORT INFORMATION
  Report Type: Report from Study
  Country: CA (occurrence: CA)
  Receive Date: 20191009
  Receipt Date: 20191009
  Transmission Date: 20200122
  Serious: Yes (Other)
  Sender: FDA-Public Use
  Company Number: CA-ACTELION-A-NJ2019-196633

PATIENT
  Age: 55 Year
  Sex: Female

DRUGS (10)
  1. FRAGMINE [Concomitant]
     Active Substance: DALTEPARIN SODIUM
  2. CLOPIDOGREL [Concomitant]
     Active Substance: CLOPIDOGREL BISULFATE
  3. CITALOPRAM [Concomitant]
     Active Substance: CITALOPRAM HYDROBROMIDE
  4. ATORVASTATIN [Concomitant]
     Active Substance: ATORVASTATIN
  5. BISOPROLOL [Concomitant]
     Active Substance: BISOPROLOL
  6. REVATIO [Concomitant]
     Active Substance: SILDENAFIL CITRATE
  7. ELTROXIN [Concomitant]
     Active Substance: LEVOTHYROXINE
  8. VITAMIN D [Concomitant]
     Active Substance: VITAMIN D NOS
  9. OPSUMIT [Suspect]
     Active Substance: MACITENTAN
     Indication: PULMONARY ARTERIAL HYPERTENSION
     Dosage: 10 MG
     Route: 048
     Dates: start: 20170502
  10. PANTOPRAZOLE [Concomitant]
     Active Substance: PANTOPRAZOLE

REACTIONS (1)
  - Hip fracture [Unknown]

NARRATIVE: CASE EVENT DATE: 20190824
